FAERS Safety Report 7945780-3 (Version None)
Quarter: 2011Q4

REPORT INFORMATION
  Report Type: 
  Country: None (occurrence: None)
  Receive Date: 20111125
  Receipt Date: 20111116
  Transmission Date: 20120403
  Serious: Yes (Hospitalization, Other)
  Sender: FDA-Public Use
  Company Number: DSA_48236_2011

PATIENT
  Age: 63 Year
  Sex: Male

DRUGS (2)
  1. DILTIAZEM HYDROCHLORIDE [Suspect]
     Indication: HYPERTENSION
     Dosage: (DF)
  2. NIFEDIPINE [Concomitant]

REACTIONS (8)
  - ELECTROCARDIOGRAM T WAVE ABNORMAL [None]
  - SINUS BRADYCARDIA [None]
  - HYPERTENSION [None]
  - RENAL IMPAIRMENT [None]
  - ELECTROCARDIOGRAM ST SEGMENT ELEVATION [None]
  - MALAISE [None]
  - HYPERKALAEMIA [None]
  - FATIGUE [None]
